FAERS Safety Report 21480739 (Version 1)
Quarter: 2022Q4

REPORT INFORMATION
  Report Type: Spontaneous
  Country: US (occurrence: US)
  Receive Date: 20221019
  Receipt Date: 20221019
  Transmission Date: 20230113
  Serious: No
  Sender: FDA-Public Use
  Company Number: US-EVOKE PHARMA, INC.-2022EVO000132

PATIENT

DRUGS (1)
  1. GIMOTI [Suspect]
     Active Substance: METOCLOPRAMIDE HYDROCHLORIDE
     Indication: Reflux gastritis
     Dosage: 15 MILLIGRAM, BID
     Route: 045
     Dates: start: 202206

REACTIONS (4)
  - Bowel movement irregularity [Unknown]
  - Somnolence [Unknown]
  - Off label use [Unknown]
  - Expired product administered [Unknown]
